FAERS Safety Report 7356137-0 (Version None)
Quarter: 2011Q1

REPORT INFORMATION
  Report Type: 
  Country: None (occurrence: None)
  Receive Date: 20110316
  Receipt Date: 20110314
  Transmission Date: 20110831
  Serious: Yes (Other)
  Sender: FDA-Public Use
  Company Number: NL-ROXANE LABORATORIES, INC.-2011-RO-00305RO

PATIENT
  Age: 16 Year

DRUGS (3)
  1. CYCLOPHOSPHAMIDE [Suspect]
     Indication: WEGENER'S GRANULOMATOSIS
     Route: 042
  2. PREDNISOLONE [Suspect]
     Indication: WEGENER'S GRANULOMATOSIS
     Route: 042
  3. METHYLPREDNISOLONE [Suspect]
     Indication: WEGENER'S GRANULOMATOSIS
     Route: 042

REACTIONS (2)
  - BRADYCARDIA [None]
  - HYPOTHERMIA [None]
